FAERS Safety Report 4805409-X (Version None)
Quarter: 2005Q4

REPORT INFORMATION
  Report Type: 
  Country: None (occurrence: None)
  Receive Date: 20051017
  Receipt Date: 20051007
  Transmission Date: 20060501
  Serious: Yes (Hospitalization)
  Sender: FDA-Public Use
  Company Number: TPA2005A01213

PATIENT
  Sex: 0

DRUGS (1)
  1. ACTOS [Suspect]
     Dosage: 30 MG, PER ORAL
     Route: 048

REACTIONS (1)
  - HOSPITALISATION [None]
